FAERS Safety Report 18599098 (Version 1)
Quarter: 2020Q4

REPORT INFORMATION
  Report Type: Spontaneous
  Country: GB (occurrence: GB)
  Receive Date: 20201210
  Receipt Date: 20201210
  Transmission Date: 20210114
  Serious: Yes (Hospitalization)
  Sender: FDA-Public Use
  Company Number: GB-TEVA-2020-GB-1855855

PATIENT
  Sex: Female

DRUGS (9)
  1. GABAPENTIN. [Concomitant]
     Active Substance: GABAPENTIN
     Dosage: 400 MILLIGRAM DAILY; AT NIGHT.
     Dates: start: 20200604
  2. NITROFURANTOIN. [Concomitant]
     Active Substance: NITROFURANTOIN
     Dosage: 28 TABLETS. 200 MG
     Dates: start: 20200518
  3. MEFENAMIC ACID. [Concomitant]
     Active Substance: MEFENAMIC ACID
     Dosage: 1500 MG AFTER FOOD. 84 TABLETS.
     Dates: start: 20200407
  4. TOPIRAMATE. [Suspect]
     Active Substance: TOPIRAMATE
     Dosage: AT NIGHT AS ADVISED BY NEUROLOGIST. TO REDUCE BY 100MG PER WEEK. UNIT DOSE: 600 MG
     Route: 048
  5. NITROFURANTOIN. [Concomitant]
     Active Substance: NITROFURANTOIN
     Dosage: 14 CAPSULES. 200 MG
     Dates: start: 20200624
  6. TRIMETHOPRIM. [Concomitant]
     Active Substance: TRIMETHOPRIM
     Dosage: 14 TABLETS. 400 MG
     Dates: start: 20200514
  7. NAPROXEN. [Concomitant]
     Active Substance: NAPROXEN
     Dosage: 750 MG
     Dates: start: 20200618
  8. GABAPENTIN. [Concomitant]
     Active Substance: GABAPENTIN
     Indication: MIGRAINE
     Dosage: 100 MG DOESN^T TAKE ROUTINELY.
     Dates: start: 20200604
  9. METRONIDAZOLE. [Concomitant]
     Active Substance: METRONIDAZOLE
     Dosage: 800 MG
     Dates: start: 20200407

REACTIONS (2)
  - Nephrocalcinosis [Recovered/Resolved with Sequelae]
  - Nephrolithiasis [Recovered/Resolved with Sequelae]
